FAERS Safety Report 8416872-X (Version None)
Quarter: 2012Q2

REPORT INFORMATION
  Report Type: 
  Country: None (occurrence: None)
  Receive Date: 20120606
  Receipt Date: 20120525
  Transmission Date: 20120825
  Serious: Yes (Other)
  Sender: FDA-Public Use
  Company Number: US-BRISTOL-MYERS SQUIBB COMPANY-16645194

PATIENT
  Sex: Female

DRUGS (2)
  1. EPIVIR [Suspect]
     Indication: HIV INFECTION
  2. REYATAZ [Suspect]
     Indication: HIV INFECTION

REACTIONS (2)
  - OSTEONECROSIS [None]
  - ARTHRITIS [None]
